FAERS Safety Report 9291535 (Version 2)
Quarter: 2013Q2

REPORT INFORMATION
  Report Type: Spontaneous
  Country: US (occurrence: US)
  Receive Date: 20130515
  Receipt Date: 20130620
  Transmission Date: 20140414
  Serious: Yes (Hospitalization)
  Sender: FDA-Public Use
  Company Number: US-009507513-1305USA006756

PATIENT
  Age: 56 Year
  Sex: Female

DRUGS (4)
  1. VICTRELIS [Suspect]
     Indication: HEPATITIS C
     Dosage: 800 MG, TID
     Route: 048
     Dates: start: 20120801
  2. VICTRELIS [Suspect]
     Dosage: DECREASED TO UNSPECIFIED DOSE
     Route: 048
  3. REBETOL [Suspect]
     Route: 048
  4. PEGASYS [Suspect]

REACTIONS (2)
  - Anaemia [Unknown]
  - Nausea [Unknown]
